FAERS Safety Report 9245961 (Version 3)
Quarter: 2013Q2

REPORT INFORMATION
  Report Type: Spontaneous
  Country: US (occurrence: US)
  Receive Date: 20130422
  Receipt Date: 20130507
  Transmission Date: 20140414
  Serious: No
  Sender: FDA-Public Use
  Company Number: US-009507513-1304USA006261

PATIENT
  Age: 47 Year
  Sex: Male
  Weight: 74.83 kg

DRUGS (3)
  1. CLARITIN [Suspect]
     Indication: HEADACHE
     Dosage: UNK, ONCE
     Route: 048
     Dates: start: 20130323, end: 20130325
  2. CLARITIN [Suspect]
     Indication: NASAL CONGESTION
  3. CLARITIN [Suspect]
     Indication: HYPERSENSITIVITY

REACTIONS (1)
  - Drug ineffective [Unknown]
